FAERS Safety Report 24148110 (Version 2)
Quarter: 2025Q2

REPORT INFORMATION
  Report Type: Spontaneous
  Country: US (occurrence: US)
  Receive Date: 20240729
  Receipt Date: 20250510
  Transmission Date: 20250717
  Serious: No
  Sender: SANOFI AVENTIS
  Company Number: US-SA-SAC20240723001220

PATIENT
  Age: 63 Year
  Sex: Female
  Weight: 93.424 kg

DRUGS (54)
  1. REZUROCK [Suspect]
     Active Substance: BELUMOSUDIL
     Indication: Acute myeloid leukaemia
     Dosage: 200 MG, BID
     Route: 048
  2. REZUROCK [Suspect]
     Active Substance: BELUMOSUDIL
     Indication: Chronic graft versus host disease
  3. TYLENOL [Concomitant]
     Active Substance: ACETAMINOPHEN
  4. ATORVASTATIN CALCIUM [Concomitant]
     Active Substance: ATORVASTATIN CALCIUM
  5. ATORVASTATIN CALCIUM [Concomitant]
     Active Substance: ATORVASTATIN CALCIUM
  6. CLOBETASOL [Concomitant]
     Active Substance: CLOBETASOL
  7. EXCEDRIN [Concomitant]
     Active Substance: ACETAMINOPHEN\ASPIRIN\CAFFEINE
  8. FOLIC ACID [Concomitant]
     Active Substance: FOLIC ACID
  9. GABAPENTIN [Concomitant]
     Active Substance: GABAPENTIN
  10. LEVOTHYROXINE [Concomitant]
     Active Substance: LEVOTHYROXINE
  11. MIDODRINE [Concomitant]
     Active Substance: MIDODRINE
  12. NYSTATIN [Concomitant]
     Active Substance: NYSTATIN
  13. OMEPRAZOLE [Concomitant]
     Active Substance: OMEPRAZOLE
  14. XARELTO [Concomitant]
     Active Substance: RIVAROXABAN
  15. FLUOCINONIDE [Concomitant]
     Active Substance: FLUOCINONIDE
  16. VALACYCLOVIR [Concomitant]
     Active Substance: VALACYCLOVIR HYDROCHLORIDE
  17. VITAMIN B12 [Concomitant]
     Active Substance: CYANOCOBALAMIN
  18. VITAMIN D3 [Concomitant]
     Active Substance: CHOLECALCIFEROL
  19. ALPHA LIPOIC [Concomitant]
  20. HEPARIN [Concomitant]
     Active Substance: HEPARIN SODIUM
  21. VITAMIN B12 [Concomitant]
     Active Substance: CYANOCOBALAMIN
  22. CYCLOBENZAPRINE HYDROCHLORIDE [Concomitant]
     Active Substance: CYCLOBENZAPRINE HYDROCHLORIDE
  23. URSODIOL [Concomitant]
     Active Substance: URSODIOL
  24. ALBUTEROL SULFATE [Concomitant]
     Active Substance: ALBUTEROL SULFATE
  25. HYDROCORTISONE [HYDROCORTISONE VALERATE] [Concomitant]
  26. CYMBALTA [Concomitant]
     Active Substance: DULOXETINE HYDROCHLORIDE
  27. ACYCLOVIR [Concomitant]
     Active Substance: ACYCLOVIR
  28. POTASSIUM CHLORIDE [Concomitant]
     Active Substance: POTASSIUM CHLORIDE
  29. ACETAMINOPHEN [Concomitant]
     Active Substance: ACETAMINOPHEN
  30. BACTRIM DS [Concomitant]
     Active Substance: SULFAMETHOXAZOLE\TRIMETHOPRIM
  31. LEVOFLOXACIN [Concomitant]
     Active Substance: LEVOFLOXACIN
  32. LORAZEPAM [Concomitant]
     Active Substance: LORAZEPAM
  33. BECLOMETHASONE DIPROPIONATE [Concomitant]
     Active Substance: BECLOMETHASONE DIPROPIONATE
  34. QVAR [Concomitant]
     Active Substance: BECLOMETHASONE DIPROPIONATE
  35. CLOBETASOL PROPIONATE [Concomitant]
     Active Substance: CLOBETASOL PROPIONATE
  36. TACROLIMUS [Concomitant]
     Active Substance: TACROLIMUS
  37. FUROSEMIDE [Concomitant]
     Active Substance: FUROSEMIDE
  38. PROCHLORPERAZINE MALEATE [Concomitant]
     Active Substance: PROCHLORPERAZINE MALEATE
  39. AZITHROMYCIN [Concomitant]
     Active Substance: AZITHROMYCIN
  40. TRAMADOL HYDROCHLORIDE [Concomitant]
     Active Substance: TRAMADOL HYDROCHLORIDE
  41. ENTOCORT [Concomitant]
     Active Substance: BUDESONIDE
  42. GRANISETRON [Concomitant]
     Active Substance: GRANISETRON
  43. TEMAZEPAM [Concomitant]
     Active Substance: TEMAZEPAM
  44. MAGNESIUM [Concomitant]
     Active Substance: MAGNESIUM
  45. METRONIDAZOLE [Concomitant]
     Active Substance: METRONIDAZOLE
  46. DAPSONE [Concomitant]
     Active Substance: DAPSONE
  47. DEXAMETHASONE SODIUM PHOSPHATE [Concomitant]
     Active Substance: DEXAMETHASONE SODIUM PHOSPHATE
  48. TRIAMCINOLONE [Concomitant]
     Active Substance: TRIAMCINOLONE
  49. MAGNESIUM OXIDE [Concomitant]
     Active Substance: MAGNESIUM OXIDE
  50. OXYCODONE HYDROCHLORIDE [Concomitant]
     Active Substance: OXYCODONE HYDROCHLORIDE
  51. CEPACOL [BENZOCAINE] [Concomitant]
  52. VORICONAZOLE [Concomitant]
     Active Substance: VORICONAZOLE
  53. DOXYCYCLINE [Concomitant]
     Active Substance: DOXYCYCLINE
  54. ZOLPIDEM [Concomitant]
     Active Substance: ZOLPIDEM TARTRATE

REACTIONS (2)
  - Disease progression [Unknown]
  - Product use in unapproved indication [Unknown]
